FAERS Safety Report 8142285 (Version 4)
Quarter: 2012Q4

REPORT INFORMATION
  Report Type: 
  Country: US (occurrence: US)
  Receive Date: 20110919
  Receipt Date: 20120829
  Transmission Date: 20130627
  Serious: Yes (Death, Hospitalization)
  Sender: FDA-Public Use
  Company Number: US-JNJFOC-20110904841

PATIENT
  Age: 54 None
  Sex: Female
  Weight: 111 kg

DRUGS (5)
  1. TYLENOL [Suspect]
     Route: 065
  2. TYLENOL [Suspect]
     Indication: PRODUCT USED FOR UNKNOWN INDICATION
     Route: 065
  3. TRAZODONE [Concomitant]
     Indication: PRODUCT USED FOR UNKNOWN INDICATION
     Route: 048
  4. MIRAPEX [Concomitant]
     Indication: RESTLESS LEGS SYNDROME
     Route: 048
  5. CLARITIN-D [Concomitant]
     Indication: EAR INFECTION
     Route: 065

REACTIONS (4)
  - Acute hepatic failure [Fatal]
  - Renal failure acute [Fatal]
  - Overdose [Fatal]
  - Syncope [None]
